FAERS Safety Report 23335248 (Version 1)
Quarter: 2023Q4

REPORT INFORMATION
  Report Type: Spontaneous
  Country: US (occurrence: US)
  Receive Date: 20231225
  Receipt Date: 20231225
  Transmission Date: 20240109
  Serious: No
  Sender: FDA-Public Use
  Company Number: US-TAKEDA-2023TUS123344

PATIENT
  Sex: Male
  Weight: 86 kg

DRUGS (3)
  1. VYVANSE [Suspect]
     Active Substance: LISDEXAMFETAMINE DIMESYLATE
     Indication: Attention deficit hyperactivity disorder
     Dosage: 60 MILLIGRAM, QD
     Route: 065
  2. CEPHALEXIN [Concomitant]
     Active Substance: CEPHALEXIN
     Indication: Skin disorder
     Dosage: UNK
     Route: 065
  3. UNSPECIFIED INGREDIENT [Concomitant]
     Active Substance: UNSPECIFIED INGREDIENT
     Dosage: UNK

REACTIONS (4)
  - Product availability issue [Unknown]
  - Frustration tolerance decreased [Unknown]
  - Product use issue [Unknown]
  - Incorrect dose administered [Unknown]
